FAERS Safety Report 4369617-7 (Version None)
Quarter: 2004Q2

REPORT INFORMATION
  Report Type: 
  Country: None (occurrence: None)
  Receive Date: 20040528
  Receipt Date: 20040527
  Transmission Date: 20050107
  Serious: Yes (Disabling)
  Sender: FDA-Public Use
  Company Number: HQWYE569004MAR04

PATIENT
  Sex: Female

DRUGS (1)
  1. RAPAMUNE [Suspect]

REACTIONS (5)
  - ACCIDENTAL OVERDOSE [None]
  - MEDICATION ERROR [None]
  - PAIN [None]
  - POLYTRAUMATISM [None]
  - UNEVALUABLE EVENT [None]
